FAERS Safety Report 8556971-5 (Version None)
Quarter: 2012Q3

REPORT INFORMATION
  Report Type: 
  Country: None (occurrence: None)
  Receive Date: 20120801
  Receipt Date: 20120402
  Transmission Date: 20120928
  Serious: Yes (Life-Threatening, Hospitalization, Other)
  Sender: FDA-Public Use
  Company Number: US-009507513-2011SP048229

PATIENT

DRUGS (1)
  1. NUVARING [Suspect]
     Indication: CONTRACEPTION
     Dates: start: 20090101, end: 20100303

REACTIONS (8)
  - PULMONARY EMBOLISM [None]
  - DYSMENORRHOEA [None]
  - DEPRESSION [None]
  - CHEST PAIN [None]
  - COAGULOPATHY [None]
  - HEADACHE [None]
  - VAGINAL INFECTION [None]
  - WEIGHT INCREASED [None]
